FAERS Safety Report 11087731 (Version 1)
Quarter: 2015Q2

REPORT INFORMATION
  Report Type: Spontaneous
  Country: CH (occurrence: CH)
  Receive Date: 20150504
  Receipt Date: 20150504
  Transmission Date: 20150821
  Serious: Yes (Hospitalization)
  Sender: FDA-Public Use
  Company Number: CH-PFIZER INC-2015149957

PATIENT
  Age: 80 Year
  Sex: Female
  Weight: 47 kg

DRUGS (11)
  1. KALIUM CHLORATUM [Concomitant]
     Active Substance: POTASSIUM CHLORIDE
     Dosage: UNK
     Dates: start: 20141110
  2. SERESTA [Concomitant]
     Active Substance: OXAZEPAM
     Dosage: UNK
     Dates: start: 20140818
  3. DIAMOX /00016901/ [Concomitant]
     Active Substance: ACETAZOLAMIDE
     Dosage: UNK
     Dates: start: 20141110, end: 201411
  4. LACRYCON /02221601/ [Concomitant]
     Dosage: UNK
     Dates: start: 201411
  5. PREDNISON GALEPHARM [Suspect]
     Active Substance: PREDNISONE
     Dosage: 65 MG, DAILY
     Route: 048
     Dates: start: 20141110
  6. PREDNISON GALEPHARM [Suspect]
     Active Substance: PREDNISONE
     Dosage: 63 MG, DAILY
     Route: 048
     Dates: start: 20140920, end: 20141001
  7. PREDNISON GALEPHARM [Suspect]
     Active Substance: PREDNISONE
     Dosage: 70 MG, DAILY
     Route: 048
     Dates: start: 20141002
  8. PANTOZOL [Suspect]
     Active Substance: PANTOPRAZOLE SODIUM
     Indication: PROPHYLAXIS AGAINST GASTROINTESTINAL ULCER
     Dosage: 40 MG, DAILY
     Route: 048
     Dates: start: 20141002
  9. COSOPT [Concomitant]
     Active Substance: DORZOLAMIDE HYDROCHLORIDE\TIMOLOL MALEATE
     Dosage: UNK
     Dates: start: 201411
  10. PREDNISON GALEPHARM [Suspect]
     Active Substance: PREDNISONE
     Indication: TEMPORAL ARTERITIS
     Dosage: 70 MG, DAILY
     Route: 048
     Dates: start: 20140818
  11. CALCIMAGON D3 [Concomitant]
     Active Substance: CALCIUM\CHOLECALCIFEROL
     Dosage: UNK
     Dates: start: 20140813

REACTIONS (6)
  - Impaired healing [Recovering/Resolving]
  - Transaminases increased [Not Recovered/Not Resolved]
  - Chronic hepatitis C [Not Recovered/Not Resolved]
  - Myopathy [Not Recovered/Not Resolved]
  - Osteoporosis [Not Recovered/Not Resolved]
  - Herpes simplex [Recovered/Resolved]

NARRATIVE: CASE EVENT DATE: 201411
